FAERS Safety Report 25613052 (Version 1)
Quarter: 2025Q3

REPORT INFORMATION
  Report Type: Spontaneous
  Country: EU (occurrence: EU)
  Receive Date: 20250728
  Receipt Date: 20250728
  Transmission Date: 20251020
  Serious: Yes (Other)
  Sender: OTSUKA
  Company Number: None

PATIENT
  Age: 91 Year
  Sex: Male

DRUGS (3)
  1. ARIPIPRAZOLE [Suspect]
     Active Substance: ARIPIPRAZOLE
     Indication: Product used for unknown indication
     Dosage: 20 MG, QD (IN MORNING)
     Route: 065
     Dates: start: 2023
  2. PIPAMPERONE HYDROCHLORIDE [Suspect]
     Active Substance: PIPAMPERONE HYDROCHLORIDE
     Indication: Product used for unknown indication
     Dosage: 60 MG, QD (20 MG, AT 6:00PM AND 40 MG, 9:00PM)
     Route: 065
  3. PIPAMPERONE HYDROCHLORIDE [Suspect]
     Active Substance: PIPAMPERONE HYDROCHLORIDE
     Route: 065

REACTIONS (10)
  - Altered state of consciousness [Unknown]
  - Unresponsive to stimuli [Unknown]
  - Pupillary disorder [Unknown]
  - Staring [Unknown]
  - Feeding disorder [Unknown]
  - Movement disorder [Unknown]
  - Muscular weakness [Unknown]
  - Asthenia [Unknown]
  - Nausea [Unknown]
  - Weight decreased [Unknown]

NARRATIVE: CASE EVENT DATE: 20250101
